FAERS Safety Report 8564111-1 (Version None)
Quarter: 2012Q3

REPORT INFORMATION
  Report Type: 
  Country: None (occurrence: None)
  Receive Date: 20120803
  Receipt Date: 20120725
  Transmission Date: 20120928
  Serious: No
  Sender: FDA-Public Use
  Company Number: AR-US-EMD SERONO, INC.-7149409

PATIENT
  Sex: Male

DRUGS (1)
  1. REBIF [Suspect]
     Indication: MULTIPLE SCLEROSIS
     Dates: start: 20010501

REACTIONS (6)
  - MULTIPLE SCLEROSIS RELAPSE [None]
  - INFLUENZA LIKE ILLNESS [None]
  - INJECTION SITE ABSCESS [None]
  - INJECTION SITE RASH [None]
  - INJECTION SITE PAIN [None]
  - INJECTION SITE INDURATION [None]
